FAERS Safety Report 19977499 (Version 1)
Quarter: 2021Q4

REPORT INFORMATION
  Report Type: Spontaneous
  Country: US (occurrence: US)
  Receive Date: 20211019
  Receipt Date: 20211019
  Transmission Date: 20220303
  Serious: Yes (Hospitalization)
  Sender: FDA-Public Use
  Company Number: None

PATIENT
  Age: 73 Year
  Sex: Male

DRUGS (10)
  1. ESBRIET [Suspect]
     Active Substance: PIRFENIDONE
     Indication: Idiopathic pulmonary fibrosis
     Dosage: ?          OTHER FREQUENCY:TID W/MEALS;
     Route: 048
     Dates: start: 20180110
  2. ESBRIET [Suspect]
     Active Substance: PIRFENIDONE
     Dosage: ?          OTHER FREQUENCY:TID W/MEALS;
     Route: 048
  3. ASPIRIN [Concomitant]
     Active Substance: ASPIRIN
  4. CLARITIN [Concomitant]
     Active Substance: LORATADINE
  5. DOXYCYCLINE HYCLATE [Concomitant]
     Active Substance: DOXYCYCLINE HYCLATE
  6. LOPERAMIDE [Concomitant]
     Active Substance: LOPERAMIDE
  7. LOSARTAN POTASSIUM [Concomitant]
     Active Substance: LOSARTAN POTASSIUM
  8. METFORMIN [Concomitant]
     Active Substance: METFORMIN HYDROCHLORIDE
  9. PIOGLITAZONE [Concomitant]
     Active Substance: PIOGLITAZONE
  10. SIMVASTATIN [Concomitant]
     Active Substance: SIMVASTATIN

REACTIONS (2)
  - Atrial fibrillation [None]
  - Chest injury [None]

NARRATIVE: CASE EVENT DATE: 20211013
